FAERS Safety Report 10096915 (Version 1)
Quarter: 2014Q2

REPORT INFORMATION
  Report Type: Spontaneous
  Country: US (occurrence: US)
  Receive Date: 20140422
  Receipt Date: 20140422
  Transmission Date: 20141212
  Serious: No
  Sender: FDA-Public Use
  Company Number: US-GILEAD-2012-0063156

PATIENT
  Age: 73 Year
  Sex: Female

DRUGS (1)
  1. LETAIRIS [Suspect]
     Indication: PULMONARY HYPERTENSION
     Dosage: 5 MG, QD
     Route: 048
     Dates: start: 20120626

REACTIONS (4)
  - Viral infection [Recovered/Resolved]
  - Diarrhoea [Unknown]
  - Drug dose omission [Unknown]
  - Vomiting [Not Recovered/Not Resolved]
